FAERS Safety Report 5291041-3 (Version None)
Quarter: 2007Q2

REPORT INFORMATION
  Report Type: 
  Country: None (occurrence: None)
  Receive Date: 20070409
  Receipt Date: 20070404
  Transmission Date: 20071010
  Serious: Yes (Other)
  Sender: FDA-Public Use
  Company Number: ES-AVENTIS-200711697EU

PATIENT
  Age: 79 Year
  Sex: Female

DRUGS (5)
  1. ENOXAPARIN SODIUM [Suspect]
     Route: 058
     Dates: start: 20061129, end: 20070104
  2. ENANTYUM [Concomitant]
     Dates: start: 20061130, end: 20061201
  3. PARACETAMOL [Concomitant]
     Dates: start: 20061201, end: 20061214
  4. NOLOTIL                            /00473101/ [Concomitant]
     Route: 042
     Dates: start: 20061130, end: 20061130
  5. NOLOTIL                            /00473101/ [Concomitant]
     Route: 042
     Dates: start: 20061201, end: 20061201

REACTIONS (2)
  - HAEMATEMESIS [None]
  - OESOPHAGITIS [None]
